FAERS Safety Report 4342744-6 (Version None)
Quarter: 2004Q2

REPORT INFORMATION
  Report Type: 
  Country: None (occurrence: None)
  Receive Date: 20040416
  Receipt Date: 20040407
  Transmission Date: 20050107
  Serious: Yes (Death)
  Sender: FDA-Public Use
  Company Number: F01200400733

PATIENT
  Age: 54 Year
  Sex: Male

DRUGS (5)
  1. OXALIPLATIN [Suspect]
     Indication: GASTRIC CANCER
     Dosage: 130 MG/M2, Q3W   INTRAVENOUS NOS
     Route: 042
     Dates: start: 20030306, end: 20030306
  2. OXALIPLATIN [Suspect]
     Indication: OESOPHAGEAL CARCINOMA
     Dosage: 130 MG/M2, Q3W   INTRAVENOUS NOS
     Route: 042
     Dates: start: 20030306, end: 20030306
  3. FLUOROURACIL [Suspect]
     Dosage: 200 MG/M2  CONT,      INTRAVENOUS NOS
     Route: 042
     Dates: start: 20030306, end: 20030306
  4. EPIRUBICIN [Suspect]
     Dosage: INTRAVENOUS BOLUS
     Route: 040
     Dates: start: 20030306, end: 20030306
  5. METOCLOPRAMIDE [Concomitant]

REACTIONS (8)
  - DIARRHOEA [None]
  - FOREIGN BODY ASPIRATION [None]
  - HAEMOGLOBIN DECREASED [None]
  - HYPOTENSION [None]
  - NEUTROPENIC SEPSIS [None]
  - PYREXIA [None]
  - VOMITING [None]
  - WHITE BLOOD CELL COUNT DECREASED [None]
